FAERS Safety Report 6200619-1 (Version None)
Quarter: 2009Q2

REPORT INFORMATION
  Report Type: 
  Country: None (occurrence: None)
  Receive Date: 20090522
  Receipt Date: 20080430
  Transmission Date: 20091009
  Serious: No
  Sender: FDA-Public Use
  Company Number: US-ALEXION-A200700112

PATIENT
  Sex: Female
  Weight: 54.422 kg

DRUGS (16)
  1. SOLIRIS [Suspect]
     Indication: PAROXYSMAL NOCTURNAL HAEMOGLOBINURIA
     Dosage: 600 MG, SINGLE
     Route: 042
     Dates: start: 20071108, end: 20071108
  2. SOLIRIS [Suspect]
     Dosage: 600 MG, SINGLE
     Route: 042
     Dates: start: 20071115, end: 20071115
  3. SOLIRIS [Suspect]
     Dosage: 600 MG, SINGLE
     Route: 042
     Dates: start: 20071121, end: 20071121
  4. SOLIRIS [Suspect]
     Dosage: 600 MG, SINGLE
     Route: 042
     Dates: start: 20071129, end: 20071129
  5. SOLIRIS [Suspect]
     Dosage: 900 MG, SINGLE
     Route: 042
     Dates: start: 20071206, end: 20071206
  6. SOLIRIS [Suspect]
     Dosage: 900 MG, SINGLE
     Route: 042
     Dates: start: 20071220, end: 20071220
  7. SOLIRIS [Suspect]
     Dosage: 900 MG, SINGLE
     Route: 042
     Dates: start: 20080104, end: 20080104
  8. KLOR-CON [Concomitant]
     Indication: HYPOKALAEMIA
     Dosage: 20 MEQ, QD
     Route: 048
  9. HYDROCHLOROTHIAZIDE [Concomitant]
     Dosage: UNK, UNK
  10. WARFARIN SODIUM [Concomitant]
     Dosage: 3 MG, QD
     Route: 048
  11. ISOSORBIDE MONONITRATE [Concomitant]
     Indication: HYPERTENSION
     Dosage: 30 MG, QD
     Route: 048
  12. AMLODIPINE [Concomitant]
     Dosage: UNK, UNK
  13. FOLIC ACID [Concomitant]
     Dosage: UNK, UNK
  14. CALCIUM [Concomitant]
     Dosage: UNK, UNK
  15. IRON [Concomitant]
     Dosage: UNK, UNK
  16. ANTIHYPERTENSIVES [Concomitant]
     Indication: HYPERTENSION
     Dosage: UNK, QD
     Route: 048

REACTIONS (8)
  - BLOOD POTASSIUM DECREASED [None]
  - FATIGUE [None]
  - HAEMATOCRIT DECREASED [None]
  - HAEMOGLOBIN DECREASED [None]
  - NERVOUSNESS [None]
  - OEDEMA PERIPHERAL [None]
  - PALPITATIONS [None]
  - SWELLING FACE [None]
